FAERS Safety Report 10075967 (Version 2)
Quarter: 2014Q2

REPORT INFORMATION
  Report Type: Spontaneous
  Country: BR (occurrence: BR)
  Receive Date: 20140414
  Receipt Date: 20140414
  Transmission Date: 20141212
  Serious: Yes (Other)
  Sender: FDA-Public Use
  Company Number: BR-DSJP-DSU-2014-103702

PATIENT
  Sex: 0

DRUGS (2)
  1. OLMETEC [Suspect]
     Indication: HYPERTENSION
     Dosage: 40 MG, QD
     Route: 048
     Dates: end: 20140327
  2. OLMETEC [Suspect]
     Dosage: 20 MG, SINGLE
     Dates: start: 20140328, end: 20140328

REACTIONS (6)
  - Arrhythmia [Recovered/Resolved]
  - Hypotension [Recovered/Resolved]
  - Feeling abnormal [Recovered/Resolved]
  - Malaise [Recovered/Resolved]
  - Dizziness [Recovered/Resolved]
  - Asthenia [Recovered/Resolved]
